FAERS Safety Report 5703439-7 (Version None)
Quarter: 2008Q2

REPORT INFORMATION
  Report Type: 
  Country: None (occurrence: None)
  Receive Date: 20080411
  Receipt Date: 20080401
  Transmission Date: 20081010
  Serious: Yes (Hospitalization, Other)
  Sender: FDA-Public Use
  Company Number: US-PFIZER INC-2008029517

PATIENT
  Sex: Female
  Weight: 59 kg

DRUGS (5)
  1. CHANTIX [Suspect]
     Indication: SMOKING CESSATION THERAPY
     Route: 048
  2. PREDNISONE [Suspect]
     Indication: PNEUMONIA
  3. LEXAPRO [Concomitant]
  4. ADVAIR HFA [Concomitant]
     Dosage: TEXT:500/50
  5. ALBUTEROL [Concomitant]

REACTIONS (6)
  - ARTHRALGIA [None]
  - FATIGUE [None]
  - PNEUMONIA BACTERIAL [None]
  - PNEUMONIA VIRAL [None]
  - THERAPEUTIC RESPONSE DELAYED [None]
  - WEIGHT INCREASED [None]
